FAERS Safety Report 5507701-2 (Version None)
Quarter: 2007Q4

REPORT INFORMATION
  Report Type: 
  Country: None (occurrence: None)
  Receive Date: 20071106
  Receipt Date: 20071030
  Transmission Date: 20080405
  Serious: Yes (Hospitalization)
  Sender: FDA-Public Use
  Company Number: B0493852A

PATIENT
  Age: 86 Year
  Sex: Female

DRUGS (2)
  1. COROPRES [Suspect]
     Dosage: 9.3MG PER DAY
     Route: 048
     Dates: start: 20070628
  2. DIGOXIN [Suspect]
     Dosage: 150MCG PER DAY
     Route: 048

REACTIONS (1)
  - ATRIAL FIBRILLATION [None]
